FAERS Safety Report 8323438-9 (Version None)
Quarter: 2012Q2

REPORT INFORMATION
  Report Type: 
  Country: None (occurrence: None)
  Receive Date: 20120430
  Receipt Date: 20110718
  Transmission Date: 20120825
  Serious: Yes (Death, Hospitalization)
  Sender: FDA-Public Use
  Company Number: PHHY2011BR64553

PATIENT
  Sex: Female

DRUGS (5)
  1. SIMVASTATIN [Concomitant]
     Indication: BLOOD CHOLESTEROL INCREASED
     Dosage: 10 MG AT NIGHT
     Route: 048
  2. CLONAZEPAM [Concomitant]
     Indication: SLEEP DISORDER
     Dosage: 5 MG AT NIGHT
     Route: 048
  3. EXFORGE [Suspect]
     Indication: HYPERTENSION
     Dosage: 160 MG VALSARATAN AND 10 MG AMLODIPINE, DAILY
     Route: 048
     Dates: start: 20100901
  4. METFORMIN HCL [Concomitant]
     Indication: DIABETES MELLITUS
     Dosage: 500 MG, DAILY
     Route: 048
  5. INSULIN [Concomitant]
     Indication: DIABETES MELLITUS
     Dosage: 30 IU, DAILY
     Route: 048

REACTIONS (7)
  - HAEMOPTYSIS [None]
  - PNEUMONIA [None]
  - PULMONARY OEDEMA [None]
  - SEDATION [None]
  - RESPIRATORY FAILURE [None]
  - DYSPNOEA [None]
  - COUGH [None]
